FAERS Safety Report 4723108-X (Version None)
Quarter: 2005Q3

REPORT INFORMATION
  Report Type: 
  Country: None (occurrence: None)
  Receive Date: 20050719
  Receipt Date: 20040701
  Transmission Date: 20060218
  Serious: Yes (Other)
  Sender: FDA-Public Use
  Company Number: 2004221798US

PATIENT

DRUGS (3)
  1. CELEBREX [Suspect]
     Indication: JOINT SURGERY
  2. VICODIN [Concomitant]
  3. IBUPROFEN [Concomitant]

REACTIONS (1)
  - GASTROINTESTINAL PERFORATION [None]
